FAERS Safety Report 17633276 (Version 1)
Quarter: 2020Q2

REPORT INFORMATION
  Report Type: Other
  Country: US (occurrence: US)
  Receive Date: 20200406
  Receipt Date: 20200406
  Transmission Date: 20200713
  Serious: Yes (Life-Threatening, Hospitalization)
  Sender: FDA-Public Use
  Company Number: US-US-PROVELL PHARMACEUTICALS LLC-9155463

PATIENT
  Age: 30 Year
  Sex: Male

DRUGS (2)
  1. LEVOTHYROXINE. [Suspect]
     Active Substance: LEVOTHYROXINE
     Dosage: DOSE OPTIMIZED
  2. LEVOTHYROXINE. [Suspect]
     Active Substance: LEVOTHYROXINE
     Indication: HYPOTHYROIDISM
     Dosage: UNSPECIFIED DOSAGE

REACTIONS (4)
  - Treatment noncompliance [Unknown]
  - Cardiac tamponade [Recovered/Resolved]
  - Hypothyroidism [Unknown]
  - Pericarditis [Recovered/Resolved]
